FAERS Safety Report 24267915 (Version 1)
Quarter: 2024Q3

REPORT INFORMATION
  Report Type: Spontaneous
  Country: FR (occurrence: FR)
  Receive Date: 20240830
  Receipt Date: 20240830
  Transmission Date: 20241016
  Serious: Yes (Other)
  Sender: TEVA
  Company Number: None

PATIENT
  Age: 63 Year
  Sex: Female

DRUGS (2)
  1. DULOXETINE [Interacting]
     Active Substance: DULOXETINE
     Indication: Pain
     Dosage: DULOXETINE HYDROCHLORIDE
     Route: 048
     Dates: start: 202406, end: 202407
  2. MIRTAZAPINE [Interacting]
     Active Substance: MIRTAZAPINE
     Indication: Depression
     Dosage: MIRTAZAPINE ARROW
     Route: 048
     Dates: start: 202311, end: 202407

REACTIONS (3)
  - Confusional state [Not Recovered/Not Resolved]
  - Drug interaction [Recovered/Resolved]
  - Nausea [Not Recovered/Not Resolved]

NARRATIVE: CASE EVENT DATE: 20240601
